FAERS Safety Report 8216649-4 (Version None)
Quarter: 2012Q1

REPORT INFORMATION
  Report Type: 
  Country: None (occurrence: None)
  Receive Date: 20120316
  Receipt Date: 20120314
  Transmission Date: 20120608
  Serious: Yes (Other)
  Sender: FDA-Public Use
  Company Number: JP-PFIZER INC-2012055839

PATIENT
  Sex: Male

DRUGS (2)
  1. TEGRETOL [Concomitant]
     Dosage: UNK
  2. ARTANE [Suspect]
     Dosage: UNK

REACTIONS (1)
  - HEPATIC NEOPLASM MALIGNANT [None]
